FAERS Safety Report 5979747-1 (Version None)
Quarter: 2008Q4

REPORT INFORMATION
  Report Type: 
  Country: None (occurrence: None)
  Receive Date: 20081204
  Receipt Date: 20080219
  Transmission Date: 20090506
  Serious: No
  Sender: FDA-Public Use
  Company Number: US-AMGEN-KDL266084

PATIENT
  Sex: Female

DRUGS (1)
  1. ENBREL [Suspect]
     Indication: RHEUMATOID ARTHRITIS
     Route: 058
     Dates: start: 20070919

REACTIONS (5)
  - DIZZINESS [None]
  - DRY EYE [None]
  - DRY MOUTH [None]
  - HEADACHE [None]
  - INFLUENZA [None]
